FAERS Safety Report 9624496 (Version 1)
Quarter: 2013Q4

REPORT INFORMATION
  Report Type: Spontaneous
  Country: IT (occurrence: IT)
  Receive Date: 20131015
  Receipt Date: 20131015
  Transmission Date: 20140711
  Serious: Yes (Hospitalization)
  Sender: FDA-Public Use
  Company Number: IT-TEVA-436679ISR

PATIENT
  Age: 60 Year
  Sex: Female

DRUGS (4)
  1. FLUOROURACILE TEVA [Suspect]
     Indication: BREAST CANCER
     Route: 042
     Dates: start: 20130108, end: 20130108
  2. CICLOFOSFAMIDE [Suspect]
     Indication: BREAST CANCER
     Route: 042
     Dates: start: 20130108, end: 20130108
  3. FARMORUBICINA [Suspect]
     Indication: BREAST CANCER
     Dates: start: 20130108, end: 20130108
  4. AUGMENTIN 875MG/125MG [Suspect]
     Dosage: 2 DOSAGE FORMS DAILY;
     Dates: start: 20130118, end: 20130118

REACTIONS (1)
  - Febrile neutropenia [Recovering/Resolving]
